FAERS Safety Report 24803261 (Version 1)
Quarter: 2025Q1

REPORT INFORMATION
  Report Type: Report from Study
  Country: TR (occurrence: TR)
  Receive Date: 20250103
  Receipt Date: 20250103
  Transmission Date: 20250408
  Serious: Yes (Death)
  Sender: ROCHE
  Company Number: TR-ROCHE-10000105910

PATIENT

DRUGS (7)
  1. RITUXIMAB [Suspect]
     Active Substance: RITUXIMAB
     Indication: Myasthenia gravis
     Route: 042
  2. RITUXIMAB [Suspect]
     Active Substance: RITUXIMAB
     Route: 042
  3. ECULIZUMAB [Suspect]
     Active Substance: ECULIZUMAB
     Indication: Myasthenia gravis
     Route: 065
  4. ECULIZUMAB [Suspect]
     Active Substance: ECULIZUMAB
     Dosage: MAINTENANCE DOSE
     Route: 065
  5. MYCOPHENOLATE MOFETIL [Concomitant]
     Active Substance: MYCOPHENOLATE MOFETIL
  6. PREDNISOLONE [Concomitant]
     Active Substance: PREDNISOLONE
  7. AZATHIOPRINE [Concomitant]
     Active Substance: AZATHIOPRINE

REACTIONS (10)
  - COVID-19 [Fatal]
  - Headache [Unknown]
  - Tachycardia [Unknown]
  - Arthralgia [Unknown]
  - Myalgia [Unknown]
  - Pneumonia [Unknown]
  - Upper respiratory tract infection [Unknown]
  - Thrombocytopenia [Unknown]
  - Atrial fibrillation [Unknown]
  - Off label use [Fatal]
